FAERS Safety Report 4808141-1 (Version None)
Quarter: 2005Q4

REPORT INFORMATION
  Report Type: 
  Country: None (occurrence: None)
  Receive Date: 20051021
  Receipt Date: 20030312
  Transmission Date: 20060501
  Serious: No
  Sender: FDA-Public Use
  Company Number: USA030331238

PATIENT
  Age: 76 Year
  Sex: Female
  Weight: 35 kg

DRUGS (7)
  1. ZYPREXA [Suspect]
     Indication: AGITATION
     Dates: start: 20030308, end: 20030311
  2. CEFTIN [Concomitant]
  3. MULTI-VITAMIN [Concomitant]
  4. CALCIUM GLUCONATE [Concomitant]
  5. VITAMIN D [Concomitant]
  6. COMBIVENT [Concomitant]
  7. RESTORIL [Concomitant]

REACTIONS (2)
  - PYREXIA [None]
  - WHITE BLOOD CELL COUNT INCREASED [None]
